FAERS Safety Report 10146500 (Version 1)
Quarter: 2014Q2

REPORT INFORMATION
  Report Type: Spontaneous
  Country: US (occurrence: US)
  Receive Date: 20140501
  Receipt Date: 20140501
  Transmission Date: 20141212
  Serious: Yes (Other)
  Sender: FDA-Public Use
  Company Number: US-PFIZER INC-2014118003

PATIENT
  Age: 49 Year
  Sex: Male
  Weight: 70 kg

DRUGS (2)
  1. CHANTIX [Suspect]
     Indication: SMOKING CESSATION THERAPY
     Dosage: UNK
     Dates: start: 201002, end: 201008
  2. LORTAB [Concomitant]
     Indication: BACK PAIN
     Dosage: UNK

REACTIONS (4)
  - Arthropod bite [Unknown]
  - Staphylococcal infection [Unknown]
  - Pneumonia [Unknown]
  - Dyspnoea [Unknown]
